FAERS Safety Report 9558992 (Version 2)
Quarter: 2013Q4

REPORT INFORMATION
  Report Type: Spontaneous
  Country: US (occurrence: US)
  Receive Date: 20130927
  Receipt Date: 20131108
  Transmission Date: 20140711
  Serious: No
  Sender: FDA-Public Use
  Company Number: US-009507513-1308USA014790

PATIENT
  Sex: 0

DRUGS (1)
  1. STROMECTOL [Suspect]
     Dosage: FOUR DOSES FOR FOUR WEEKS REGIMEN
     Route: 048

REACTIONS (1)
  - Inappropriate schedule of drug administration [Unknown]
